FAERS Safety Report 7443393-3 (Version None)
Quarter: 2011Q2

REPORT INFORMATION
  Report Type: 
  Country: None (occurrence: None)
  Receive Date: 20110428
  Receipt Date: 20110419
  Transmission Date: 20111010
  Serious: Yes (Hospitalization)
  Sender: FDA-Public Use
  Company Number: NL-MEDIMMUNE-MEDI-0012625

PATIENT
  Sex: Male
  Weight: 7.12 kg

DRUGS (2)
  1. SYNAGIS [Suspect]
     Route: 030
     Dates: start: 20110125, end: 20110322
  2. SYNAGIS [Suspect]
     Route: 030
     Dates: start: 20101005, end: 20101228

REACTIONS (13)
  - PNEUMONIA [None]
  - VIRAL INFECTION [None]
  - LARYNGITIS [None]
  - COUGH [None]
  - MIDDLE EAR INFLAMMATION [None]
  - WEIGHT GAIN POOR [None]
  - RESPIRATORY SYNCYTIAL VIRUS INFECTION [None]
  - PRODUCTIVE COUGH [None]
  - BREATH SOUNDS ABNORMAL [None]
  - RESPIRATION ABNORMAL [None]
  - WHEEZING [None]
  - NASOPHARYNGITIS [None]
  - DYSPNOEA [None]
